FAERS Safety Report 7630418-5 (Version None)
Quarter: 2011Q3

REPORT INFORMATION
  Report Type: 
  Country: None (occurrence: None)
  Receive Date: 20110722
  Receipt Date: 20110715
  Transmission Date: 20111222
  Serious: Yes (Hospitalization)
  Sender: FDA-Public Use
  Company Number: JP-GLAXOSMITHKLINE-B0693577A

PATIENT
  Sex: Male
  Weight: 80 kg

DRUGS (4)
  1. LAMICTAL [Suspect]
     Indication: EPILEPSY
     Dosage: 100MG PER DAY
     Route: 048
     Dates: start: 20101126, end: 20101222
  2. TEGRETOL [Concomitant]
     Indication: EPILEPSY
     Dosage: 50MG PER DAY
     Route: 048
     Dates: start: 20101126, end: 20101209
  3. CEREDIST [Concomitant]
     Route: 048
  4. CLONAZEPAM [Concomitant]
     Route: 048

REACTIONS (7)
  - PYREXIA [None]
  - ERYTHEMA [None]
  - GENERALISED ERYTHEMA [None]
  - GRANULOCYTE COUNT DECREASED [None]
  - PANCYTOPENIA [None]
  - BONE MARROW FAILURE [None]
  - RASH [None]
